FAERS Safety Report 13876939 (Version 1)
Quarter: 2017Q3

REPORT INFORMATION
  Report Type: Report from Study
  Country: CZ (occurrence: CZ)
  Receive Date: 20170817
  Receipt Date: 20170817
  Transmission Date: 20171127
  Serious: Yes (Hospitalization)
  Sender: FDA-Public Use
  Company Number: CZ-ASTELLAS-2017US032209

PATIENT
  Age: 73 Year
  Sex: Male

DRUGS (16)
  1. XGEVA [Concomitant]
     Active Substance: DENOSUMAB
     Indication: PROPHYLAXIS
     Dosage: 120 MG (TOTAL DAILY DOSE), UNKNOWN FREQ.
     Route: 058
     Dates: start: 20150307
  2. DITHIADEN [Concomitant]
     Active Substance: BISULEPIN
     Indication: PROPHYLAXIS
     Route: 042
     Dates: start: 20170214
  3. BLINDED ENZALUTAMIDE [Suspect]
     Active Substance: ENZALUTAMIDE
     Indication: PROSTATE CANCER
     Dosage: UNK UNK, ONCE DAILY
     Route: 048
     Dates: start: 20170214, end: 20170801
  4. ENZALUTAMIDE [Suspect]
     Active Substance: ENZALUTAMIDE
     Indication: PROSTATE CANCER
     Route: 048
     Dates: start: 20150401, end: 20170213
  5. DOCETAXEL. [Suspect]
     Active Substance: DOCETAXEL
     Indication: PROSTATE CANCER
     Route: 042
     Dates: start: 20170214, end: 20170509
  6. DEXENO [Concomitant]
     Indication: PROPHYLAXIS
     Route: 042
     Dates: start: 20170214
  7. DHC CONTIN [Concomitant]
     Active Substance: DIHYDROCODEINE BITARTRATE
     Indication: BACK PAIN
     Dosage: 100 MG (TOTAL DAILY DOSE), UNKNOWN FREQ.
     Route: 048
     Dates: start: 20170502
  8. PREDNISONE. [Suspect]
     Active Substance: PREDNISONE
     Indication: PROSTATE CANCER
     Route: 048
     Dates: start: 20170214, end: 20170531
  9. CALCITRATE [Concomitant]
     Active Substance: CALCIUM CITRATE
     Indication: OSTEOPOROSIS PROPHYLAXIS
     Dosage: 1 TABLET (TOTAL DAILY DOSE), UNKNOWN FREQ.
     Route: 048
     Dates: start: 2013
  10. URIZIA [Concomitant]
     Indication: MICTURITION URGENCY
  11. DOXYBENE [Concomitant]
     Indication: LYME DISEASE
     Dosage: 100 MG (TOTAL DAILY DOSE), UNKNOWN FREQ.
     Route: 048
     Dates: start: 20160815
  12. URIZIA [Concomitant]
     Indication: LOWER URINARY TRACT SYMPTOMS
     Route: 048
     Dates: start: 2014
  13. GRANISETRON [Concomitant]
     Active Substance: GRANISETRON
     Indication: PROPHYLAXIS
     Route: 048
     Dates: start: 20170214
  14. STILNOX [Concomitant]
     Active Substance: ZOLPIDEM TARTRATE
     Indication: INSOMNIA
     Dosage: 5 MG (TOTAL DAILY DOSE), UNKNOWN FREQ.
     Route: 048
     Dates: start: 2007
  15. HELICID                            /00661201/ [Concomitant]
     Indication: PROPHYLAXIS
     Dosage: 20 MG (TOTAL DAILY DOSE), UNKNOWN FREQ.
     Route: 048
     Dates: start: 20170214
  16. FLIXOTIDE [Concomitant]
     Active Substance: FLUTICASONE PROPIONATE
     Indication: ASTHMA
     Dosage: 1 INHALATION, UNKNOWN FREQ.
     Route: 055
     Dates: start: 2013

REACTIONS (1)
  - Central venous catheterisation [Recovered/Resolved]

NARRATIVE: CASE EVENT DATE: 20170516
